FAERS Safety Report 23649455 (Version 1)
Quarter: 2024Q1

REPORT INFORMATION
  Report Type: Spontaneous
  Country: NL (occurrence: NL)
  Receive Date: 20240319
  Receipt Date: 20240319
  Transmission Date: 20240409
  Serious: Yes (Hospitalization)
  Sender: FDA-Public Use
  Company Number: None

PATIENT
  Age: 71 Year
  Sex: Male
  Weight: 71 kg

DRUGS (9)
  1. PEMETREXED [Suspect]
     Active Substance: PEMETREXED
     Indication: Lung adenocarcinoma stage IV
     Dosage: 1000 MILLIGRAM, IN PRINCIPLE EVERY 3 WEEKS
     Route: 065
     Dates: start: 20230814, end: 20240223
  2. KEYTRUDA [Suspect]
     Active Substance: PEMBROLIZUMAB
     Indication: Lung adenocarcinoma stage IV
     Dosage: 200 MILLIGRAM, IN PRINCIPLE EVERY 3 WEEKS
     Route: 065
     Dates: start: 20230814, end: 20240223
  3. CISPLATIN [Suspect]
     Active Substance: CISPLATIN
     Indication: Lung adenocarcinoma stage IV
     Dosage: 150 MILLIGRAM, IN PRINCIPLE EVERY 3 WEEKS
     Route: 065
     Dates: start: 20230814, end: 20240223
  4. TAMSULOSIN HYDROCHLORIDE [Concomitant]
     Active Substance: TAMSULOSIN HYDROCHLORIDE
     Dosage: 0.4 MILLIGRAM (REGULATED-RELEASE CAPSULE)
     Route: 065
  5. SUCRALFAAT [Concomitant]
     Dosage: 1 GRAM, SACHETS (GRANULES)
     Route: 065
  6. PANTOPRAZOLE SODIUM [Concomitant]
     Active Substance: PANTOPRAZOLE SODIUM
     Dosage: 40 MILLIGRAM
     Route: 065
  7. DOMPERIDONE [Concomitant]
     Active Substance: DOMPERIDONE
     Dosage: 10 MILLIGRAM
     Route: 065
  8. APIXABAN [Concomitant]
     Active Substance: APIXABAN
     Dosage: 5 MILLIGRAM
     Route: 065
  9. OXAZEPAM [Concomitant]
     Active Substance: OXAZEPAM
     Dosage: 10 MILLIGRAM
     Route: 065

REACTIONS (1)
  - Immune-mediated cholangitis [Not Recovered/Not Resolved]
